FAERS Safety Report 17186659 (Version 1)
Quarter: 2019Q4

REPORT INFORMATION
  Report Type: Spontaneous
  Country: JP (occurrence: JP)
  Receive Date: 20191220
  Receipt Date: 20191220
  Transmission Date: 20200122
  Serious: Yes (Other)
  Sender: FDA-Public Use
  Company Number: JP-EISAI MEDICAL RESEARCH-EC-2019-067481

PATIENT

DRUGS (3)
  1. LENVIMA [Suspect]
     Active Substance: LENVATINIB
     Dosage: DOSE AND FREQUENCY UNKNOWN (DOSE REDUCED)
     Route: 048
     Dates: start: 2019, end: 201911
  2. LENVIMA [Suspect]
     Active Substance: LENVATINIB
     Indication: HEPATOCELLULAR CARCINOMA
     Route: 048
     Dates: start: 201910, end: 2019
  3. LOPERAMIDE [Concomitant]
     Active Substance: LOPERAMIDE
     Indication: DIARRHOEA
     Dosage: DOSE AND FREQUENCY UNKNOWN
     Route: 048
     Dates: start: 201910, end: 201911

REACTIONS (4)
  - Hepatic encephalopathy [Unknown]
  - Diarrhoea [Unknown]
  - Ascites [Unknown]
  - Platelet count decreased [Recovered/Resolved]

NARRATIVE: CASE EVENT DATE: 201910
